FAERS Safety Report 20036805 (Version 5)
Quarter: 2022Q3

REPORT INFORMATION
  Report Type: Spontaneous
  Country: JP (occurrence: JP)
  Receive Date: 20211105
  Receipt Date: 20220714
  Transmission Date: 20221027
  Serious: Yes (Life-Threatening, Hospitalization, Other)
  Sender: FDA-Public Use
  Company Number: JP-GLAXOSMITHKLINE-JP2021JPN219457

PATIENT

DRUGS (5)
  1. LAMICTAL [Suspect]
     Active Substance: LAMOTRIGINE
     Indication: Epilepsy
     Dosage: 25 MG, 1D
     Route: 048
     Dates: start: 20201204, end: 20201218
  2. VIMPAT TABLET [Concomitant]
     Indication: Epilepsy
     Dosage: 200 MG, 1D
     Route: 048
     Dates: start: 20191018
  3. NEXIUM [Concomitant]
     Active Substance: ESOMEPRAZOLE MAGNESIUM
     Indication: Prophylaxis against gastrointestinal ulcer
     Dosage: 20 MG, 1D
     Route: 048
     Dates: start: 20190618
  4. WARFARIN POTASSIUM [Concomitant]
     Active Substance: WARFARIN POTASSIUM
     Indication: Cerebral venous sinus thrombosis
     Dosage: 3.5 MG, 1D
     Route: 048
     Dates: start: 20190618
  5. LOXOPROFEN SODIUM [Concomitant]
     Active Substance: LOXOPROFEN SODIUM
     Indication: Headache
     Dosage: 60 MG, PRN
     Route: 048
     Dates: start: 20190618, end: 20201220

REACTIONS (14)
  - Toxic epidermal necrolysis [Recovered/Resolved]
  - Pyrexia [Recovered/Resolved]
  - Epidermal necrosis [Recovered/Resolved]
  - Ocular hyperaemia [Recovered/Resolved]
  - Lip erosion [Recovered/Resolved]
  - Oral mucosa erosion [Recovered/Resolved]
  - Erythema [Recovered/Resolved]
  - Blister [Recovered/Resolved]
  - Skin erosion [Recovered/Resolved]
  - Malaise [Recovered/Resolved]
  - Dysphagia [Recovered/Resolved]
  - Lymphocytic infiltration [Recovered/Resolved]
  - Eczema [Recovered/Resolved]
  - Skin degenerative disorder [Recovered/Resolved]

NARRATIVE: CASE EVENT DATE: 20201215
